FAERS Safety Report 6158048-5 (Version None)
Quarter: 2009Q2

REPORT INFORMATION
  Report Type: 
  Country: None (occurrence: None)
  Receive Date: 20090417
  Receipt Date: 20090407
  Transmission Date: 20091009
  Serious: Yes (Other)
  Sender: FDA-Public Use
  Company Number: GB-PFIZER INC-2009194844

PATIENT

DRUGS (1)
  1. VFEND [Suspect]
     Indication: FUNGAL INFECTION

REACTIONS (1)
  - RED MAN SYNDROME [None]
